FAERS Safety Report 8140520-X (Version None)
Quarter: 2012Q1

REPORT INFORMATION
  Report Type: 
  Country: None (occurrence: None)
  Receive Date: 20120216
  Receipt Date: 20120208
  Transmission Date: 20120608
  Serious: Yes (Hospitalization)
  Sender: FDA-Public Use
  Company Number: US-BAYER-2011-062985

PATIENT
  Age: 41 Year
  Sex: Female
  Weight: 104 kg

DRUGS (4)
  1. YAZ [Suspect]
     Indication: CONTRACEPTION
     Dosage: UNK
     Dates: start: 20081001, end: 20090201
  2. NAPROXEN [Concomitant]
     Indication: HEADACHE
     Dosage: UNK
     Dates: start: 20081101
  3. MIDOL MENSTRUAL COMPLETE CAPLETS [Concomitant]
     Indication: DYSMENORRHOEA
     Dosage: UNK
     Dates: start: 20081101
  4. IMITREX [Concomitant]
     Dosage: UNK
     Dates: start: 20060101

REACTIONS (8)
  - MUSCULOSKELETAL PAIN [None]
  - CHOLECYSTITIS CHRONIC [None]
  - CONSTIPATION [None]
  - PYREXIA [None]
  - CHOLECYSTECTOMY [None]
  - ATRIOVENTRICULAR BLOCK [None]
  - BACK PAIN [None]
  - ARRHYTHMIA [None]
